FAERS Safety Report 19743727 (Version 1)
Quarter: 2021Q3

REPORT INFORMATION
  Report Type: Spontaneous
  Country: CN (occurrence: CN)
  Receive Date: 20210825
  Receipt Date: 20210825
  Transmission Date: 20211014
  Serious: Yes (Hospitalization)
  Sender: FDA-Public Use
  Company Number: CN-ASTRAZENECA-2021A691401

PATIENT
  Age: 29585 Day
  Sex: Male
  Weight: 45 kg

DRUGS (1)
  1. BUDESONIDE. [Suspect]
     Active Substance: BUDESONIDE
     Indication: ASTHMA PROPHYLAXIS
     Route: 055
     Dates: start: 20210815, end: 20210815

REACTIONS (3)
  - Mouth breathing [Unknown]
  - Dyspnoea [Recovering/Resolving]
  - Orthopnoea [Unknown]

NARRATIVE: CASE EVENT DATE: 20210815
